FAERS Safety Report 9094348 (Version 1)
Quarter: 2013Q1

REPORT INFORMATION
  Report Type: Spontaneous
  Country: US (occurrence: None)
  Receive Date: 20130214
  Receipt Date: 20130214
  Transmission Date: 20140127
  Serious: No
  Sender: FDA-Public Use
  Company Number: None

PATIENT
  Age: 78 Year
  Sex: Male
  Weight: 64 kg

DRUGS (1)
  1. LIDOCAINE [Suspect]
     Indication: SURGERY
     Dosage: 5 ML  ONCE  TOP
     Route: 061
     Dates: start: 20121024, end: 20121024

REACTIONS (2)
  - Hearing impaired [None]
  - Muscle twitching [None]
